FAERS Safety Report 8182352-2 (Version None)
Quarter: 2012Q1

REPORT INFORMATION
  Report Type: 
  Country: None (occurrence: None)
  Receive Date: 20120303
  Receipt Date: 20120220
  Transmission Date: 20120608
  Serious: Yes (Hospitalization)
  Sender: FDA-Public Use
  Company Number: IT-AMGEN-ITASP2011036495

PATIENT
  Age: 29 Year
  Sex: Female

DRUGS (7)
  1. ENBREL [Suspect]
     Indication: RHEUMATOID ARTHRITIS
     Dosage: 50 MG, WEEKLY
     Route: 058
     Dates: start: 20101129, end: 20110606
  2. PREDNISONE TAB [Concomitant]
     Dosage: 6.25 MG, UNK
  3. PLAQUENIL [Concomitant]
     Dosage: 400 MG, UNK
     Route: 048
  4. ARAVA [Suspect]
     Dosage: 20 MG, UNK
  5. MABTHERA [Suspect]
     Indication: RHEUMATOID ARTHRITIS
     Dosage: 2 G, CYCLIC
     Route: 042
     Dates: start: 20090204, end: 20100825
  6. ARAVA [Suspect]
     Indication: RHEUMATOID ARTHRITIS
     Dosage: 20 MG, DAILY
     Route: 048
     Dates: start: 20101129, end: 20110606
  7. HYDROXYCHLOROQUINE                 /00072603/ [Concomitant]
     Dosage: UNK

REACTIONS (3)
  - VAGINAL HAEMORRHAGE [None]
  - SQUAMOUS CELL CARCINOMA OF THE CERVIX [None]
  - PELVIC PAIN [None]
